FAERS Safety Report 7737004-7 (Version None)
Quarter: 2011Q3

REPORT INFORMATION
  Report Type: 
  Country: None (occurrence: None)
  Receive Date: 20110908
  Receipt Date: 20110826
  Transmission Date: 20111222
  Serious: Yes (Other)
  Sender: FDA-Public Use
  Company Number: US-ELI_LILLY_AND_COMPANY-US201108000838

PATIENT
  Age: 83 Year
  Sex: Female
  Weight: 56.5 kg

DRUGS (1)
  1. FORTEO [Suspect]
     Indication: FRACTURE DELAYED UNION

REACTIONS (6)
  - DYSARTHRIA [None]
  - VIITH NERVE PARALYSIS [None]
  - TRANSIENT ISCHAEMIC ATTACK [None]
  - NAUSEA [None]
  - OFF LABEL USE [None]
  - APHASIA [None]
